FAERS Safety Report 5309888-3 (Version None)
Quarter: 2007Q2

REPORT INFORMATION
  Report Type: 
  Country: None (occurrence: None)
  Receive Date: 20070427
  Receipt Date: 20070416
  Transmission Date: 20071010
  Serious: Yes (Hospitalization, Disabling)
  Sender: FDA-Public Use
  Company Number: FR-ROCHE-493542

PATIENT
  Age: 15 Year
  Sex: Male

DRUGS (1)
  1. ROACCUTANE [Suspect]
     Indication: ACNE
     Route: 048
     Dates: end: 20070307

REACTIONS (5)
  - ACNE FULMINANS [None]
  - DEPRESSED MOOD [None]
  - INTERVERTEBRAL DISC PROTRUSION [None]
  - SACROILIITIS [None]
  - SUPERINFECTION [None]
